FAERS Safety Report 4873899-2 (Version None)
Quarter: 2006Q1

REPORT INFORMATION
  Report Type: 
  Country: None (occurrence: None)
  Receive Date: 20060104
  Receipt Date: 20051221
  Transmission Date: 20060701
  Serious: Yes (Other)
  Sender: FDA-Public Use
  Company Number: 2005172576

PATIENT
  Age: 68 Year
  Sex: Male
  Weight: 78.9259 kg

DRUGS (9)
  1. VIAGRA [Suspect]
     Indication: ERECTILE DYSFUNCTION
  2. CARDURA [Suspect]
     Indication: HYPERTENSION
  3. NORVASC [Suspect]
     Indication: ILL-DEFINED DISORDER
  4. LIPITOR [Suspect]
     Indication: BLOOD CHOLESTEROL INCREASED
  5. GEODON [Suspect]
     Indication: ILL-DEFINED DISORDER
  6. NEUPRONTIN (GABAPENTIN) [Suspect]
     Indication: ILL-DEFINED DISORDER
  7. PLAVIX [Suspect]
     Indication: ILL-DEFINED DISORDER
  8. PACERONE [Suspect]
     Indication: ILL-DEFINED DISORDER
  9. WELLBUTRIN [Suspect]
     Indication: ILL-DEFINED DISORDER
     Dates: end: 20051219

REACTIONS (3)
  - CONDITION AGGRAVATED [None]
  - DRUG EFFECT DECREASED [None]
  - ERECTILE DYSFUNCTION [None]
